FAERS Safety Report 4875046-X (Version None)
Quarter: 2006Q1

REPORT INFORMATION
  Report Type: 
  Country: None (occurrence: None)
  Receive Date: 20060109
  Receipt Date: 20060102
  Transmission Date: 20060701
  Serious: Yes (Other)
  Sender: FDA-Public Use
  Company Number: DE-JNJFOC-20060100084

PATIENT
  Sex: Male
  Weight: 43 kg

DRUGS (7)
  1. DURAGESIC-100 [Suspect]
     Indication: SUICIDE ATTEMPT
     Route: 062
  2. APONAL [Suspect]
     Indication: SUICIDE ATTEMPT
     Route: 065
  3. CIPRAMIL [Suspect]
     Indication: SUICIDE ATTEMPT
     Dosage: 1 DOSE = 1 TABLET
     Route: 048
  4. DIAZEPAM [Suspect]
     Indication: SUICIDE ATTEMPT
     Route: 065
  5. NOVALGIN [Suspect]
     Indication: SUICIDE ATTEMPT
     Route: 048
  6. TRIMIPRAMINE MALEATE [Suspect]
     Indication: SUICIDE ATTEMPT
     Route: 065
  7. ALCOHOLIC BEVERAGES [Suspect]
     Indication: SUICIDE ATTEMPT
     Route: 048

REACTIONS (2)
  - FATIGUE [None]
  - SUICIDE ATTEMPT [None]
